FAERS Safety Report 8557400-8 (Version None)
Quarter: 2012Q3

REPORT INFORMATION
  Report Type: 
  Country: None (occurrence: None)
  Receive Date: 20120801
  Receipt Date: 20120724
  Transmission Date: 20120928
  Serious: Yes (Other)
  Sender: FDA-Public Use
  Company Number: JP-VERTEX PHARMACEUTICALS INC.-AE-2012-008844

PATIENT
  Age: 75 Year
  Sex: Female

DRUGS (5)
  1. PEGINTERFERON ALFA-2B [Concomitant]
     Dates: start: 20120417, end: 20120529
  2. TELAVIC (TELAPREVIR) [Suspect]
     Route: 048
     Dates: start: 20120508, end: 20120605
  3. NAUZELIN OD [Concomitant]
     Route: 048
     Dates: start: 20120424, end: 20120605
  4. TELAVIC (TELAPREVIR) [Suspect]
     Indication: HEPATITIS C
     Route: 048
     Dates: start: 20120417, end: 20120507
  5. RIBAVIRIN [Concomitant]
     Route: 048
     Dates: start: 20120417, end: 20120529

REACTIONS (1)
  - BLOOD CREATININE INCREASED [None]
